FAERS Safety Report 24575117 (Version 3)
Quarter: 2025Q3

REPORT INFORMATION
  Report Type: Spontaneous
  Country: TN (occurrence: TN)
  Receive Date: 20241104
  Receipt Date: 20250826
  Transmission Date: 20251020
  Serious: Yes (Other)
  Sender: JUBILANT
  Company Number: TN-JUBILANT CADISTA PHARMACEUTICALS-2015TN000371

PATIENT

DRUGS (5)
  1. LEVOFLOXACIN [Suspect]
     Active Substance: LEVOFLOXACIN
     Indication: Upper respiratory tract infection
     Dates: start: 201310
  2. LEVOFLOXACIN [Suspect]
     Active Substance: LEVOFLOXACIN
     Dosage: 500 MG, ONCE PER DAY, FOR 6 DAYS
     Dates: start: 2013, end: 2013
  3. METRONIDAZOLE [Concomitant]
     Active Substance: METRONIDAZOLE
     Indication: Upper respiratory tract infection
     Dosage: 1000 MG, ONCE PER DAY, FOR 5 DAYS
     Dates: start: 2013
  4. ACETAMINOPHEN [Concomitant]
     Active Substance: ACETAMINOPHEN
     Indication: Upper respiratory tract infection
     Dosage: 1000 MG, ONCE PER DAY
     Dates: start: 2013
  5. BICLOTYMOL [Concomitant]
     Active Substance: BICLOTYMOL
     Indication: Upper respiratory tract infection
     Dosage: UNK UNK, 3 TIMES PER DAY
     Route: 048
     Dates: start: 2013

REACTIONS (1)
  - Drug reaction with eosinophilia and systemic symptoms [Recovered/Resolved]

NARRATIVE: CASE EVENT DATE: 20130101
